FAERS Safety Report 11968755 (Version 2)
Quarter: 2016Q1

REPORT INFORMATION
  Report Type: Spontaneous
  Country: US (occurrence: US)
  Receive Date: 20160128
  Receipt Date: 20160201
  Transmission Date: 20160526
  Serious: Yes (Hospitalization, Other)
  Sender: FDA-Public Use
  Company Number: US-ASTRAZENECA-2016SE07355

PATIENT
  Age: 56 Year
  Sex: Male
  Weight: 90.7 kg

DRUGS (14)
  1. NEXIUM [Suspect]
     Active Substance: ESOMEPRAZOLE MAGNESIUM
     Indication: CHEST PAIN
     Route: 048
  2. NEXIUM [Suspect]
     Active Substance: ESOMEPRAZOLE MAGNESIUM
     Indication: GASTROOESOPHAGEAL REFLUX DISEASE
     Route: 048
  3. NEXIUM [Suspect]
     Active Substance: ESOMEPRAZOLE MAGNESIUM
     Indication: GASTROOESOPHAGEAL REFLUX DISEASE
     Route: 048
  4. NEXIUM [Suspect]
     Active Substance: ESOMEPRAZOLE MAGNESIUM
     Indication: CHEST PAIN
     Dosage: TAKING ONLY WHEN NEEDED
     Route: 048
  5. NEXIUM [Suspect]
     Active Substance: ESOMEPRAZOLE MAGNESIUM
     Indication: GASTROOESOPHAGEAL REFLUX DISEASE
     Dosage: TAKING ONLY WHEN NEEDED
     Route: 048
  6. NEXIUM [Suspect]
     Active Substance: ESOMEPRAZOLE MAGNESIUM
     Indication: CHEST PAIN
     Route: 048
     Dates: start: 2006
  7. GLUCOSAMINE [Concomitant]
     Active Substance: GLUCOSAMINE
     Route: 048
     Dates: start: 2012
  8. NEXIUM [Suspect]
     Active Substance: ESOMEPRAZOLE MAGNESIUM
     Indication: GASTROOESOPHAGEAL REFLUX DISEASE
     Route: 048
     Dates: start: 2006
  9. LIPITOR [Concomitant]
     Active Substance: ATORVASTATIN CALCIUM
     Indication: BLOOD CHOLESTEROL ABNORMAL
     Route: 048
     Dates: start: 2007
  10. NEXIUM [Suspect]
     Active Substance: ESOMEPRAZOLE MAGNESIUM
     Indication: CHEST PAIN
     Route: 048
  11. LISINOPRIL. [Suspect]
     Active Substance: LISINOPRIL
     Indication: BLOOD PRESSURE ABNORMAL
     Route: 048
     Dates: start: 2008
  12. METFORMIN [Concomitant]
     Active Substance: METFORMIN HYDROCHLORIDE
     Indication: TYPE 2 DIABETES MELLITUS
     Route: 048
     Dates: start: 2012
  13. VITAMINS NOS [Concomitant]
     Active Substance: VITAMINS
     Route: 048
     Dates: start: 2012
  14. HERBAL NOS [Concomitant]
     Active Substance: HERBALS
     Route: 048
     Dates: start: 2012

REACTIONS (12)
  - Arthralgia [Recovered/Resolved]
  - Product use issue [Unknown]
  - Coronary artery disease [Unknown]
  - Muscle spasms [Unknown]
  - Blood magnesium decreased [Unknown]
  - Off label use [Unknown]
  - Myocardial infarction [Unknown]
  - Type 2 diabetes mellitus [Unknown]
  - Hypertension [Unknown]
  - Diarrhoea [Unknown]
  - Off label use [Unknown]
  - Chest pain [Recovered/Resolved]

NARRATIVE: CASE EVENT DATE: 2006
